FAERS Safety Report 16687638 (Version 1)
Quarter: 2019Q4

REPORT INFORMATION
  Report Type: Spontaneous
  Country: US (occurrence: US)
  Receive Date: 20190808
  Receipt Date: 20190808
  Transmission Date: 20200122
  Serious: Yes (Other)
  Sender: FDA-Public Use
  Company Number: None

PATIENT
  Age: 55 Year
  Sex: Male
  Weight: 80.3 kg

DRUGS (4)
  1. ROCURONIUM [Suspect]
     Active Substance: ROCURONIUM BROMIDE
     Indication: RENAL TRANSPLANT
     Route: 042
  2. FENTANYL. [Concomitant]
     Active Substance: FENTANYL
  3. LIDOCAINE. [Concomitant]
     Active Substance: LIDOCAINE
  4. MIDAZOLAM [Concomitant]
     Active Substance: MIDAZOLAM HYDROCHLORIDE

REACTIONS (2)
  - Vocal cord disorder [None]
  - Therapeutic product effect decreased [None]

NARRATIVE: CASE EVENT DATE: 20190729
